FAERS Safety Report 14962387 (Version 1)
Quarter: 2018Q2

REPORT INFORMATION
  Report Type: Report from Study
  Country: JP (occurrence: JP)
  Receive Date: 20180601
  Receipt Date: 20180601
  Transmission Date: 20180711
  Serious: Yes (Hospitalization)
  Sender: FDA-Public Use
  Company Number: JP-ACTELION-A-CH2017-162604

PATIENT
  Age: 69 Year
  Sex: Male

DRUGS (18)
  1. ALFACALCIDOL [Concomitant]
     Active Substance: ALFACALCIDOL
  2. LYRICA [Suspect]
     Active Substance: PREGABALIN
     Dosage: 300 MG, QD
     Route: 048
     Dates: start: 20170424, end: 20170730
  3. LYRICA [Suspect]
     Active Substance: PREGABALIN
     Dosage: 150 MG, QD
     Route: 048
     Dates: start: 20170814, end: 20170827
  4. UPTRAVI [Concomitant]
     Active Substance: SELEXIPAG
  5. LYRICA [Suspect]
     Active Substance: PREGABALIN
     Indication: SKIN ULCER
     Dosage: 100 MG, QD
     Route: 048
     Dates: start: 20170214, end: 20170313
  6. LYRICA [Suspect]
     Active Substance: PREGABALIN
     Dosage: 200 MG, QD
     Route: 048
     Dates: start: 20170403, end: 20170423
  7. NEXIUM [Concomitant]
     Active Substance: ESOMEPRAZOLE MAGNESIUM
  8. REBAMIPIDE [Concomitant]
     Active Substance: REBAMIPIDE
  9. RIONA [Concomitant]
     Active Substance: FERRIC CITRATE ANHYDROUS
  10. LYRICA [Suspect]
     Active Substance: PREGABALIN
     Dosage: 100 MG, QD
     Route: 048
     Dates: start: 20170322, end: 20170402
  11. CARELOAD [Suspect]
     Active Substance: BERAPROST SODIUM
     Indication: PULMONARY ARTERIAL HYPERTENSION
     Dosage: 60 ?G, BID
     Route: 048
     Dates: start: 20170214, end: 20170222
  12. CARELOAD [Suspect]
     Active Substance: BERAPROST SODIUM
     Dosage: 60 ?G, BID
     Route: 048
     Dates: start: 20170313, end: 20170416
  13. OPSUMIT [Suspect]
     Active Substance: MACITENTAN
     Indication: PULMONARY ARTERIAL HYPERTENSION
     Dosage: 2.5 MG, OD
     Route: 048
     Dates: start: 20161107
  14. BROTIZOLAM [Concomitant]
     Active Substance: BROTIZOLAM
  15. OXYGEN. [Concomitant]
     Active Substance: OXYGEN
  16. LYRICA [Suspect]
     Active Substance: PREGABALIN
     Dosage: 225 MG, QD
     Route: 048
     Dates: start: 20170731, end: 20170813
  17. CARELOAD [Suspect]
     Active Substance: BERAPROST SODIUM
     Dosage: 120 ?G, BID
     Route: 048
     Dates: start: 20170223, end: 20170312
  18. PRECIPITATED CALCIUM CARBONATE [Concomitant]
     Active Substance: CALCIUM CARBONATE

REACTIONS (9)
  - Skin ulcer [Recovering/Resolving]
  - Hypoxia [Unknown]
  - Concomitant disease aggravated [Recovering/Resolving]
  - Gangrene [Recovering/Resolving]
  - Cyanosis [Recovering/Resolving]
  - Alanine aminotransferase increased [Recovered/Resolved]
  - Hepatic function abnormal [Recovered/Resolved]
  - Aspartate aminotransferase increased [Recovered/Resolved]
  - Blood alkaline phosphatase abnormal [Recovered/Resolved]

NARRATIVE: CASE EVENT DATE: 20170110
